FAERS Safety Report 7537864-9 (Version None)
Quarter: 2011Q2

REPORT INFORMATION
  Report Type: 
  Country: None (occurrence: None)
  Receive Date: 20110609
  Receipt Date: 20110531
  Transmission Date: 20111010
  Serious: Yes (Hospitalization)
  Sender: FDA-Public Use
  Company Number: NL-BAXTER-2011BH018025

PATIENT
  Age: 51 Year
  Sex: Male

DRUGS (7)
  1. GAMMAGARD S/D [Suspect]
     Indication: CHRONIC INFLAMMATORY DEMYELINATING POLYRADICULONEUROPATHY
     Route: 042
     Dates: start: 20100908
  2. GAMMAGARD S/D [Suspect]
     Indication: OFF LABEL USE
     Route: 042
     Dates: start: 20100908
  3. GAMMAGARD S/D [Suspect]
     Route: 042
     Dates: start: 20110505, end: 20110505
  4. GAMMAGARD S/D [Suspect]
     Route: 042
     Dates: start: 20110531
  5. LOSARTAN POTASSIUM [Concomitant]
     Indication: HYPERTENSION
     Route: 048
  6. GAMMAGARD S/D [Suspect]
     Route: 042
     Dates: start: 20110505, end: 20110505
  7. GAMMAGARD S/D [Suspect]
     Route: 042
     Dates: start: 20110531

REACTIONS (5)
  - PARALYSIS [None]
  - FEELING ABNORMAL [None]
  - FATIGUE [None]
  - TRANSIENT ISCHAEMIC ATTACK [None]
  - HEADACHE [None]
